FAERS Safety Report 18507039 (Version 1)
Quarter: 2020Q4

REPORT INFORMATION
  Report Type: Spontaneous
  Country: FR (occurrence: FR)
  Receive Date: 20201116
  Receipt Date: 20201116
  Transmission Date: 20210114
  Serious: Yes (Other)
  Sender: FDA-Public Use
  Company Number: FR-JNJFOC-20201113528

PATIENT

DRUGS (14)
  1. LACIDIPINE [Concomitant]
     Active Substance: LACIDIPINE
     Indication: SYSTEMIC SCLERODERMA
  2. NIFEDIPINE. [Concomitant]
     Active Substance: NIFEDIPINE
     Indication: SYSTEMIC SCLERODERMA
     Route: 065
  3. LACIDIPINE [Concomitant]
     Active Substance: LACIDIPINE
     Indication: RAYNAUD^S PHENOMENON
  4. ISRADIPINE. [Concomitant]
     Active Substance: ISRADIPINE
     Indication: RAYNAUD^S PHENOMENON
  5. FUMARIC ACID [Concomitant]
     Active Substance: FUMARIC ACID
     Indication: SYSTEMIC SCLERODERMA
  6. EPOPROSTENOL SODIUM. [Suspect]
     Active Substance: EPOPROSTENOL SODIUM
     Indication: SYSTEMIC SCLERODERMA
  7. EPOPROSTENOL SODIUM. [Suspect]
     Active Substance: EPOPROSTENOL SODIUM
     Indication: RAYNAUD^S PHENOMENON
     Route: 065
  8. ISRADIPINE. [Concomitant]
     Active Substance: ISRADIPINE
     Indication: SYSTEMIC SCLERODERMA
  9. ILOPROST. [Suspect]
     Active Substance: ILOPROST
     Indication: SYSTEMIC SCLERODERMA
     Route: 065
  10. NICARDIPINE [Concomitant]
     Active Substance: NICARDIPINE
     Indication: SYSTEMIC SCLERODERMA
  11. NICARDIPINE [Concomitant]
     Active Substance: NICARDIPINE
     Indication: RAYNAUD^S PHENOMENON
  12. SILDENAFIL. [Concomitant]
     Active Substance: SILDENAFIL
     Indication: SYSTEMIC SCLERODERMA
     Route: 065
  13. NIFEDIPINE. [Concomitant]
     Active Substance: NIFEDIPINE
     Indication: SYSTEMIC SCLERODERMA
  14. ALEMTUZUMAB [Concomitant]
     Active Substance: ALEMTUZUMAB
     Indication: SYSTEMIC SCLERODERMA

REACTIONS (14)
  - Syncope [Unknown]
  - Flushing [Unknown]
  - Blood pressure systolic decreased [Unknown]
  - Headache [Unknown]
  - Hypotension [Unknown]
  - Nasal congestion [Unknown]
  - Epistaxis [Unknown]
  - Orthostatic hypotension [Unknown]
  - Blood pressure decreased [Unknown]
  - Dizziness [Unknown]
  - Hot flush [Unknown]
  - Feeling hot [Unknown]
  - Erythromelalgia [Unknown]
  - Vasodilatation [Unknown]
